FAERS Safety Report 9179666 (Version 1)
Quarter: 2012Q4

REPORT INFORMATION
  Report Type: 
  Country: US (occurrence: US)
  Receive Date: 20121029
  Receipt Date: 20121029
  Transmission Date: 20130627
  Serious: Yes (Other)
  Sender: FDA-Public Use
  Company Number: US-JNJFOC-20121010776

PATIENT
  Sex: Female

DRUGS (1)
  1. SPORANOX [Suspect]
     Indication: TORULOPSIS INFECTION
     Route: 048

REACTIONS (2)
  - Immune system disorder [Unknown]
  - Wrong technique in drug usage process [Unknown]
